FAERS Safety Report 8139668-5 (Version None)
Quarter: 2012Q1

REPORT INFORMATION
  Report Type: 
  Country: None (occurrence: None)
  Receive Date: 20120215
  Receipt Date: 20120209
  Transmission Date: 20120608
  Serious: Yes (Other)
  Sender: FDA-Public Use
  Company Number: PHHO2010CA02667

PATIENT
  Sex: Male
  Weight: 77.8 kg

DRUGS (3)
  1. EVEROLIMUS [Suspect]
     Indication: RENAL TRANSPLANT
     Dosage: 3 MG IN THE MORNING AND 2 MG IN THE EVENING
     Route: 048
     Dates: start: 20000816
  2. CYCLOSPORINE [Suspect]
     Indication: PROPHYLAXIS AGAINST TRANSPLANT REJECTION
     Dosage: 50 MG, BID
     Dates: start: 20000816
  3. PREDNISONE TAB [Concomitant]
     Indication: PROPHYLAXIS AGAINST TRANSPLANT REJECTION
     Dosage: 5 MG, QD
     Dates: start: 20000816

REACTIONS (2)
  - SQUAMOUS CELL CARCINOMA [None]
  - BOWEN'S DISEASE [None]
